FAERS Safety Report 19888325 (Version 1)
Quarter: 2021Q3

REPORT INFORMATION
  Report Type: Report from Study
  Country: PA (occurrence: PA)
  Receive Date: 20210927
  Receipt Date: 20210927
  Transmission Date: 20211014
  Serious: Yes (Other)
  Sender: FDA-Public Use
  Company Number: NVSC2021PA201386

PATIENT
  Age: 68 Year
  Sex: Female

DRUGS (4)
  1. AROMASIN [Concomitant]
     Active Substance: EXEMESTANE
     Indication: PRODUCT USED FOR UNKNOWN INDICATION
     Dosage: 25 MG
     Route: 065
  2. TRAMADOL. [Concomitant]
     Active Substance: TRAMADOL
     Indication: PAIN
     Dosage: 50 MG
     Route: 065
     Dates: start: 2017
  3. OXA 1A PHARMA [Concomitant]
     Indication: ARTHRALGIA
     Dosage: 150 MG, QD (SINCE 15 YEARS)
     Route: 065
  4. KISQALI [Suspect]
     Active Substance: RIBOCICLIB
     Indication: BREAST CANCER
     Dosage: 600 MG, QD (TAKES 200MG 3 TABLETS DAILY TOGETHER)
     Route: 048
     Dates: start: 20210807

REACTIONS (5)
  - Haemoglobin decreased [Recovering/Resolving]
  - Therapeutic response unexpected [Unknown]
  - Decreased immune responsiveness [Unknown]
  - Decreased appetite [Recovering/Resolving]
  - Blood iron decreased [Recovering/Resolving]

NARRATIVE: CASE EVENT DATE: 202108
